FAERS Safety Report 21350914 (Version 1)
Quarter: 2022Q3

REPORT INFORMATION
  Report Type: Spontaneous
  Country: DE (occurrence: DE)
  Receive Date: 20220919
  Receipt Date: 20220919
  Transmission Date: 20221026
  Serious: Yes (Hospitalization)
  Sender: FDA-Public Use
  Company Number: DE-ADRED-05739-01

PATIENT
  Age: 67 Year
  Sex: Male
  Weight: 80 kg

DRUGS (17)
  1. PEMETREXED [Suspect]
     Active Substance: PEMETREXED
     Indication: Product used for unknown indication
     Dosage: 75, ACCORDING TO PLAN
  2. CISPLATIN [Suspect]
     Active Substance: CISPLATIN
     Indication: Product used for unknown indication
     Dosage: 75, AS PLANNED
  3. ZOLEDRONIC ACID [Suspect]
     Active Substance: ZOLEDRONIC ACID
     Indication: Product used for unknown indication
     Dosage: AS PLANNED
  4. DEXAMETHASONE [Concomitant]
     Active Substance: DEXAMETHASONE
     Indication: Product used for unknown indication
     Dosage: 4 MG, 1-0-1-0, TABLETS
     Route: 048
  5. Glycopyrroniumbromid/Indacaterol [Concomitant]
     Indication: Product used for unknown indication
     Dosage: 62.55|110 ?, 1-0-0-0, HARD CAPSULE WITH POWDER FOR INHALATION
     Route: 055
  6. METAMIZOL [Concomitant]
     Active Substance: METAMIZOLE SODIUM
     Indication: Product used for unknown indication
     Dosage: 750 MG, AS NEEDED, DROPS
     Route: 048
  7. IRON [Concomitant]
     Active Substance: IRON
     Indication: Product used for unknown indication
     Dosage: 50 MG, 1-0-1-0, CAPSULES
     Route: 048
  8. CALCIUM CARBONATE\CALCIUM LACTATE GLUCONATE [Concomitant]
     Active Substance: CALCIUM CARBONATE\CALCIUM LACTATE GLUCONATE
     Indication: Product used for unknown indication
     Dosage: 300|2945.15 MG, 0-1-0-0, EFFERVESCENT TABLETS
     Route: 048
  9. PANTOPRAZOLE SODIUM [Concomitant]
     Active Substance: PANTOPRAZOLE SODIUM
     Indication: Product used for unknown indication
     Dosage: 40 MG, 1-0-1-0, PROLONGED RELEASE TABLETS
     Route: 048
  10. FOLIC ACID [Concomitant]
     Active Substance: FOLIC ACID
     Indication: Product used for unknown indication
     Dosage: 0.4 MG, 13-0-0-0, TABLETS
     Route: 048
  11. TAMSULOSIN [Concomitant]
     Active Substance: TAMSULOSIN
     Indication: Product used for unknown indication
     Dosage: 0.4 MG, 1-0-0-0, (PROLONGED RELEASE CAPSULES)
     Route: 048
  12. ENOXAPARIN [Concomitant]
     Active Substance: ENOXAPARIN
     Indication: Product used for unknown indication
     Dosage: 80 MG, 1-0-1-0, PREFILLED SYRINGE
     Route: 058
  13. METOCLOPRAMIDE [Concomitant]
     Active Substance: METOCLOPRAMIDE
     Indication: Product used for unknown indication
     Dosage: 10 MG, 1-1-1-0, TABLETS
     Route: 048
  14. SODIUM PICOSULFATE [Concomitant]
     Active Substance: SODIUM PICOSULFATE
     Indication: Product used for unknown indication
     Dosage: 5 MG, 0-1-0-0, DROPS
     Route: 048
  15. Cyanocobalamin (Vitamin B12) [Concomitant]
     Indication: Product used for unknown indication
     Dosage: 1 MG, 0-1-0-0, TABLETS
     Route: 048
  16. CHOLECALCIFEROL [Concomitant]
     Active Substance: CHOLECALCIFEROL
     Indication: Product used for unknown indication
     Dosage: 1000 IE, 2-0-0-0, TABLETS
     Route: 048
  17. LACTULOSE [Concomitant]
     Active Substance: LACTULOSE
     Indication: Product used for unknown indication
     Dosage: 6.670 G, 0-1-0-0, SYRUP
     Route: 048

REACTIONS (7)
  - Muscular weakness [Unknown]
  - Weight decreased [Unknown]
  - Anaemia [Unknown]
  - Constipation [Unknown]
  - Nausea [Unknown]
  - Dyspnoea [Unknown]
  - General physical health deterioration [Unknown]
